FAERS Safety Report 18894023 (Version 2)
Quarter: 2021Q1

REPORT INFORMATION
  Report Type: Report from Study
  Country: SE (occurrence: SE)
  Receive Date: 20210215
  Receipt Date: 20210222
  Transmission Date: 20210420
  Serious: Yes (Other)
  Sender: FDA-Public Use
  Company Number: SE-MYLANLABS-2021M1009123

PATIENT
  Age: 63 Year
  Sex: Male

DRUGS (1)
  1. METHADONE [Suspect]
     Active Substance: METHADONE HYDROCHLORIDE
     Indication: PAIN
     Dosage: RECEIVED CONTINUOUS...
     Route: 058

REACTIONS (2)
  - Respiratory rate decreased [Recovered/Resolved]
  - Bradypnoea [Recovered/Resolved]
